FAERS Safety Report 25270957 (Version 1)
Quarter: 2025Q2

REPORT INFORMATION
  Report Type: Spontaneous
  Country: FR (occurrence: FR)
  Receive Date: 20250506
  Receipt Date: 20250506
  Transmission Date: 20250717
  Serious: Yes (Hospitalization)
  Sender: CHEPLAPHARM
  Company Number: None

PATIENT
  Age: 84 Year
  Sex: Female
  Weight: 36 kg

DRUGS (3)
  1. HYDROXYUREA [Suspect]
     Active Substance: HYDROXYUREA
     Indication: Anal squamous cell carcinoma
     Route: 048
     Dates: start: 20250227, end: 20250227
  2. HYDROXYUREA [Suspect]
     Active Substance: HYDROXYUREA
     Indication: Anal squamous cell carcinoma
     Route: 048
     Dates: start: 20250310
  3. HYDROXYUREA [Suspect]
     Active Substance: HYDROXYUREA
     Indication: Anal squamous cell carcinoma
     Route: 048
     Dates: start: 20250311, end: 20250311

REACTIONS (7)
  - Campylobacter colitis [Not Recovered/Not Resolved]
  - Hypokalaemia [Recovered/Resolved]
  - Hypocalcaemia [Unknown]
  - Hypomagnesaemia [Unknown]
  - Hyponatraemia [Unknown]
  - Petechiae [Recovering/Resolving]
  - Off label use [Recovered/Resolved]

NARRATIVE: CASE EVENT DATE: 20250227
